FAERS Safety Report 5155562-6 (Version None)
Quarter: 2006Q4

REPORT INFORMATION
  Report Type: 
  Country: None (occurrence: None)
  Receive Date: 20061113
  Receipt Date: 20060221
  Transmission Date: 20070319
  Serious: Yes (Hospitalization)
  Sender: FDA-Public Use
  Company Number: 221748

PATIENT
  Age: 65 Year
  Sex: Female

DRUGS (13)
  1. AVASTIN [Suspect]
     Indication: OVARIAN CANCER
     Dosage: 836 MG, QOW, INTRAVENOUS
     Route: 042
     Dates: start: 20051215, end: 20060126
  2. ERLOTINIB(ERLOTINIB) TABLET, 150MG [Suspect]
     Indication: OVARIAN CANCER
     Dosage: 150 MG, QD, ORAL
     Route: 048
     Dates: start: 20051215, end: 20060126
  3. MULTIVITAMIN (MULTIVITAMINS NOS) [Concomitant]
  4. CALCIUM (CALCIUM NOS) [Concomitant]
  5. LOVASTATIN [Concomitant]
  6. ATENOLOL [Concomitant]
  7. PROZAC [Concomitant]
  8. ASPIRIN [Concomitant]
  9. LOPERAMIDE [Concomitant]
  10. DOXYCYCLINE [Concomitant]
  11. VICODIN [Concomitant]
  12. ATIVAN [Concomitant]
  13. NEOSPORIN OINTMENT (BACTRACIN ZINC, NEOMYCIN SULFATE, POLYMYXIN B SULF [Concomitant]

REACTIONS (14)
  - ABDOMINAL DISTENSION [None]
  - ADENOCARCINOMA [None]
  - ATELECTASIS [None]
  - BLOOD GLUCOSE INCREASED [None]
  - BLOOD SODIUM DECREASED [None]
  - DIARRHOEA [None]
  - DISEASE PROGRESSION [None]
  - HAEMATOCRIT INCREASED [None]
  - HAEMOGLOBIN INCREASED [None]
  - MALIGNANT PLEURAL EFFUSION [None]
  - METASTASES TO PLEURA [None]
  - OVARIAN CANCER METASTATIC [None]
  - PLEURAL EFFUSION [None]
  - PNEUMONIA [None]
